FAERS Safety Report 6836067-0 (Version None)
Quarter: 2010Q3

REPORT INFORMATION
  Report Type: 
  Country: None (occurrence: None)
  Receive Date: 20100713
  Receipt Date: 20100701
  Transmission Date: 20110219
  Serious: Yes (Hospitalization, Disabling, Other)
  Sender: FDA-Public Use
  Company Number: US-ROCHE-419570

PATIENT
  Sex: Male
  Weight: 101.2 kg

DRUGS (2)
  1. ACCUTANE [Suspect]
     Indication: ACNE
     Dosage: ADMINISTERED IN THE EVENINGS.
     Route: 048
     Dates: start: 19960312, end: 19960801
  2. ERYTHROMYCIN [Concomitant]
     Indication: ACNE
     Route: 048
     Dates: start: 19960507, end: 19960703

REACTIONS (15)
  - ANAEMIA [None]
  - ANXIETY [None]
  - C-REACTIVE PROTEIN INCREASED [None]
  - COLITIS [None]
  - COLITIS ULCERATIVE [None]
  - COLONIC STENOSIS [None]
  - DEPRESSION [None]
  - GASTROINTESTINAL DISORDER [None]
  - GASTROOESOPHAGEAL REFLUX DISEASE [None]
  - HYPOKALAEMIA [None]
  - HYPOMAGNESAEMIA [None]
  - INFLAMMATORY BOWEL DISEASE [None]
  - INTESTINAL HAEMORRHAGE [None]
  - OSTEOPENIA [None]
  - PROCTITIS ULCERATIVE [None]
